FAERS Safety Report 5261434-9 (Version None)
Quarter: 2007Q1

REPORT INFORMATION
  Report Type: 
  Country: None (occurrence: None)
  Receive Date: 20070307
  Receipt Date: 20070222
  Transmission Date: 20070707
  Serious: Yes (Death, Hospitalization)
  Sender: FDA-Public Use
  Company Number: 2005EU001227

PATIENT
  Age: 59 Year
  Sex: Male

DRUGS (9)
  1. FK506 (TACROLIMUS) CAPSULE [Suspect]
     Indication: LIVER TRANSPLANT
     Dosage: 3.00 MG, UID/QD, ORAL
     Route: 048
     Dates: start: 20041213, end: 20050420
  2. PREDNISONE TAB [Suspect]
     Indication: LIVER TRANSPLANT
     Dosage: 10.00 MG, UID/QD, UNKNOWN
     Dates: start: 20041213
  3. INSULIN (INSULIN) [Concomitant]
  4. MORPHINE [Concomitant]
  5. PANTOPRAZOLE SODIUM [Concomitant]
  6. RAPAMYCIN (SIROLIMUS) [Concomitant]
  7. PIPERACILLIN [Concomitant]
  8. TAZOBACTAM [Concomitant]
  9. CORTICOSTEROIDS [Concomitant]

REACTIONS (11)
  - BLOOD CULTURE POSITIVE [None]
  - CEREBRAL ATROPHY [None]
  - EOSINOPHILIA [None]
  - HERPES VIRUS INFECTION [None]
  - LIVER TRANSPLANT REJECTION [None]
  - MALIGNANT ASCITES [None]
  - MENINGITIS CRYPTOCOCCAL [None]
  - MULTI-ORGAN FAILURE [None]
  - PRIMARY EFFUSION LYMPHOMA [None]
  - STREPTOCOCCAL INFECTION [None]
  - TREMOR [None]
